FAERS Safety Report 9324461 (Version 1)
Quarter: 2013Q2

REPORT INFORMATION
  Report Type: Report from Study
  Country: US (occurrence: US)
  Receive Date: 20130603
  Receipt Date: 20130603
  Transmission Date: 20140414
  Serious: Yes (Hospitalization)
  Sender: FDA-Public Use
  Company Number: US-009507513-1303USA013742

PATIENT
  Age: 70 Year
  Sex: Male
  Weight: 83 kg

DRUGS (14)
  1. VORINOSTAT [Suspect]
     Indication: GLIOBLASTOMA MULTIFORME
     Dosage: 300 MG PO ON DAYS 1-5, WEEKLY (CYCLE 1)
     Route: 048
     Dates: start: 20120924
  2. VORINOSTAT [Suspect]
     Dosage: 400 MG PO ON DAYS 1-7 AND 15-21 (CYCLE 3-13 =28 DAYS), COURSE 5
     Route: 048
     Dates: start: 20130303, end: 20130323
  3. TEMOZOLOMIDE [Suspect]
     Indication: GLIOBLASTOMA MULTIFORME
     Dosage: 75 MG/M2, QD
     Route: 048
     Dates: start: 20120924
  4. TEMOZOLOMIDE [Suspect]
     Dosage: 200 MG/M2 PO ON DAYS 1-5 (CYCLE 5)
     Route: 048
     Dates: start: 20130303
  5. DEXAMETHASONE [Suspect]
  6. SINGULAIR [Suspect]
  7. ALBUTEROL [Concomitant]
  8. CHONDROITIN SULFATE SODIUM (+) GLUCOSAMINE SULFATE [Concomitant]
  9. LEVETIRACETAM [Concomitant]
  10. XANTHOPHYLL [Concomitant]
  11. MAXAIR [Concomitant]
  12. VITAMINS (UNSPECIFIED) [Concomitant]
  13. ONDANSETRON [Concomitant]
  14. OMEGA-3 [Concomitant]

REACTIONS (1)
  - Herpes zoster [Recovering/Resolving]
